FAERS Safety Report 7845718-3 (Version None)
Quarter: 2011Q4

REPORT INFORMATION
  Report Type: 
  Country: None (occurrence: None)
  Receive Date: 20111025
  Receipt Date: 20111020
  Transmission Date: 20120403
  Serious: Yes (Hospitalization)
  Sender: FDA-Public Use
  Company Number: CA-ABBOTT-11P-028-0866855-00

PATIENT
  Sex: Female
  Weight: 56.296 kg

DRUGS (3)
  1. RABEPRAZOLE SODIUM [Concomitant]
     Indication: GASTRIC DISORDER
     Route: 048
     Dates: start: 20090101
  2. HUMIRA [Suspect]
     Indication: CROHN'S DISEASE
     Route: 058
     Dates: start: 20110617, end: 20110729
  3. MEDICATION FOR BLOOD PRESSURE (NAME UNKNOWN) [Concomitant]
     Indication: BLOOD PRESSURE
     Route: 048
     Dates: start: 20010101

REACTIONS (3)
  - WEIGHT DECREASED [None]
  - COLITIS ULCERATIVE [None]
  - DRUG INEFFECTIVE [None]
